FAERS Safety Report 24426908 (Version 1)
Quarter: 2024Q4

REPORT INFORMATION
  Report Type: Spontaneous
  Country: CA (occurrence: CA)
  Receive Date: 20241011
  Receipt Date: 20241011
  Transmission Date: 20250114
  Serious: Yes (Death, Other)
  Sender: TAIHO ONCOLOGY INC
  Company Number: CA-TAIHOP-2024-009558

PATIENT
  Age: 77 Year
  Sex: Male

DRUGS (3)
  1. TIPIRACIL HYDROCHLORIDE\TRIFLURIDINE [Suspect]
     Active Substance: TIPIRACIL HYDROCHLORIDE\TRIFLURIDINE
     Indication: Colorectal cancer metastatic
     Dosage: DOSE, FREQUENCY AND CYCLE UNKNOWN
     Route: 048
  2. BEVACIZUMAB [Suspect]
     Active Substance: BEVACIZUMAB
     Indication: Colorectal cancer metastatic
     Route: 065
  3. APIXABAN [Suspect]
     Active Substance: APIXABAN
     Indication: Anticoagulant therapy

REACTIONS (12)
  - Death [Fatal]
  - Cytopenia [Unknown]
  - Hydronephrosis [Unknown]
  - Injection site bruising [Unknown]
  - Injection site haematoma [Unknown]
  - Renal failure [Unknown]
  - Haemoglobin decreased [Unknown]
  - Infection [Unknown]
  - Internal haemorrhage [Unknown]
  - Disease progression [Unknown]
  - Platelet count decreased [Unknown]
  - Red blood cell count decreased [Unknown]
